FAERS Safety Report 7355586-4 (Version None)
Quarter: 2011Q1

REPORT INFORMATION
  Report Type: 
  Country: None (occurrence: None)
  Receive Date: 20110316
  Receipt Date: 20110308
  Transmission Date: 20110831
  Serious: Yes (Death, Hospitalization)
  Sender: FDA-Public Use
  Company Number: B0700848A

PATIENT
  Age: 86 Year
  Sex: Male
  Weight: 90 kg

DRUGS (5)
  1. GLUCOPHAGE [Concomitant]
  2. ZOCOR [Concomitant]
  3. AVANDIA [Suspect]
     Indication: DIABETES MELLITUS
     Dosage: 8MG PER DAY
     Route: 048
     Dates: start: 20020101, end: 20050101
  4. INSULIN [Concomitant]
  5. TOPROL-XL [Concomitant]

REACTIONS (4)
  - CARDIAC FAILURE CONGESTIVE [None]
  - MYOCARDIAL ISCHAEMIA [None]
  - MYOCARDIAL INFARCTION [None]
  - AORTIC STENOSIS [None]
